FAERS Safety Report 8715829 (Version 2)
Quarter: 2012Q4

REPORT INFORMATION
  Report Type: Report from Study
  Country: FR (occurrence: FR)
  Receive Date: 20120809
  Receipt Date: 20120914
  Transmission Date: 20130627
  Serious: Yes (Hospitalization)
  Sender: FDA-Public Use
  Company Number: FR-US-EMD SERONO, INC.-7152510

PATIENT
  Age: 39 None
  Sex: Female

DRUGS (1)
  1. REBIF [Suspect]
     Indication: MULTIPLE SCLEROSIS
     Route: 058
     Dates: start: 20120514, end: 20120712

REACTIONS (5)
  - Suicide attempt [Recovering/Resolving]
  - Nausea [Unknown]
  - Feeding disorder [Unknown]
  - Fatigue [Unknown]
  - Influenza like illness [Recovered/Resolved]
